FAERS Safety Report 12692987 (Version 1)
Quarter: 2016Q3

REPORT INFORMATION
  Report Type: Spontaneous
  Country: US (occurrence: US)
  Receive Date: 20160829
  Receipt Date: 20160829
  Transmission Date: 20161109
  Serious: Yes (Hospitalization, Other)
  Sender: FDA-Public Use
  Company Number: US-ASTRAZENECA-2016SE91684

PATIENT
  Sex: Female
  Weight: 58.1 kg

DRUGS (18)
  1. OXYGEN. [Concomitant]
     Active Substance: OXYGEN
     Indication: CHRONIC OBSTRUCTIVE PULMONARY DISEASE
     Dosage: 2.0L CONTINUOUSLY
     Route: 045
  2. ASPIRIN. [Concomitant]
     Active Substance: ASPIRIN
     Indication: PROPHYLAXIS
     Route: 048
  3. ROPINIROLE. [Concomitant]
     Active Substance: ROPINIROLE
     Indication: RESTLESS LEGS SYNDROME
     Dosage: 0.5 MG ONCE OR TWICE A MONTH AS NEEDED
     Route: 048
  4. ROPINIROLE. [Concomitant]
     Active Substance: ROPINIROLE
     Indication: MUSCLE SPASMS
     Dosage: 0.5 MG THREE OR FOUR TIMES A MONTH
     Route: 048
  5. OXYGEN. [Concomitant]
     Active Substance: OXYGEN
     Indication: EMPHYSEMA
     Dosage: 2.0L CONTINUOUSLY
     Route: 045
  6. REGLAN [Concomitant]
     Active Substance: METOCLOPRAMIDE HYDROCHLORIDE
     Dosage: 5 MG  BEFORE  DINNER AND BEFORE BEDTIME UNKNOWN
  7. STIOLTO RESPIMAT [Concomitant]
     Active Substance: OLODATEROL HYDROCHLORIDE\TIOTROPIUM BROMIDE MONOHYDRATE
     Indication: CHRONIC OBSTRUCTIVE PULMONARY DISEASE
     Dosage: 2.5 MG TWO PUFFS A DAY
     Route: 055
  8. REGLAN [Concomitant]
     Active Substance: METOCLOPRAMIDE HYDROCHLORIDE
     Dosage: 10.0MG UNKNOWN
  9. STIOLTO RESPIMAT [Concomitant]
     Active Substance: OLODATEROL HYDROCHLORIDE\TIOTROPIUM BROMIDE MONOHYDRATE
     Indication: EMPHYSEMA
     Dosage: 2.5 MG TWO PUFFS A DAY
     Route: 055
  10. PROVENTIL [Concomitant]
     Active Substance: ALBUTEROL
     Indication: DYSPNOEA
     Dosage: TWO TO THREE PUFFS AS NEEDED
     Route: 055
  11. OMEPRAZOLE. [Concomitant]
     Active Substance: OMEPRAZOLE
     Indication: GASTROOESOPHAGEAL REFLUX DISEASE
     Route: 048
  12. ROPINIROLE. [Concomitant]
     Active Substance: ROPINIROLE
     Indication: RESTLESS LEGS SYNDROME
     Dosage: 0.5 MG THREE OR FOUR TIMES A MONTH
     Route: 048
  13. DALIRESP [Suspect]
     Active Substance: ROFLUMILAST
     Indication: CHRONIC OBSTRUCTIVE PULMONARY DISEASE
     Route: 048
     Dates: start: 201605, end: 20160821
  14. IPRATROPIUM BROMIDE AND ALBUTEROL SULFATE THRU NEBULIZER [Concomitant]
     Indication: ASTHMA
     Dosage: DAILY
     Route: 055
  15. ROPINIROLE. [Concomitant]
     Active Substance: ROPINIROLE
     Indication: MUSCLE SPASMS
     Dosage: 0.5 MG ONCE OR TWICE A MONTH AS NEEDED
     Route: 048
  16. IPRATROPIUM BROMIDE AND ALBUTEROL SULFATE THRU NEBULIZER [Concomitant]
     Indication: EMPHYSEMA
     Dosage: DAILY
     Route: 055
  17. OXYGEN. [Concomitant]
     Active Substance: OXYGEN
     Indication: ASTHMA
     Dosage: 2.0L CONTINUOUSLY
     Route: 045
  18. IPRATROPIUM BROMIDE AND ALBUTEROL SULFATE THRU NEBULIZER [Concomitant]
     Indication: CHRONIC OBSTRUCTIVE PULMONARY DISEASE
     Dosage: DAILY
     Route: 055

REACTIONS (20)
  - Malaise [Unknown]
  - Nausea [Unknown]
  - Muscle spasms [Unknown]
  - Panic attack [Unknown]
  - Decreased appetite [Unknown]
  - Insomnia [Unknown]
  - Depression [Unknown]
  - Anxiety [Unknown]
  - Diarrhoea [Unknown]
  - Memory impairment [Unknown]
  - Decreased interest [Unknown]
  - Dizziness [Unknown]
  - Suicidal ideation [Unknown]
  - Mood swings [Unknown]
  - Disturbance in attention [Unknown]
  - Nightmare [Unknown]
  - Weight decreased [Unknown]
  - Back pain [Unknown]
  - Tremor [Unknown]
  - Fatigue [Unknown]
